FAERS Safety Report 8276258-8 (Version None)
Quarter: 2012Q2

REPORT INFORMATION
  Report Type: 
  Country: None (occurrence: None)
  Receive Date: 20120412
  Receipt Date: 20120406
  Transmission Date: 20120825
  Serious: Yes (Other)
  Sender: FDA-Public Use
  Company Number: PHHY2012MX030054

PATIENT
  Sex: Male

DRUGS (1)
  1. ZOLEDRONOC ACID [Suspect]
     Indication: OSTEOPOROSIS
     Dosage: 5 MG/100ML ONCE YEAR
     Route: 042
     Dates: start: 20110806

REACTIONS (4)
  - DYSKINESIA [None]
  - CEREBRAL INFARCTION [None]
  - DYSARTHRIA [None]
  - BONE PAIN [None]
